FAERS Safety Report 7047159-8 (Version None)
Quarter: 2010Q4

REPORT INFORMATION
  Report Type: 
  Country: None (occurrence: None)
  Receive Date: 20101015
  Receipt Date: 20101005
  Transmission Date: 20110411
  Serious: Yes (Hospitalization)
  Sender: FDA-Public Use
  Company Number: GB-ELI_LILLY_AND_COMPANY-GB201010001437

PATIENT
  Age: 78 Year
  Sex: Female

DRUGS (3)
  1. GEMCITABINE HCL [Suspect]
     Dosage: 2508 MG, DAILY (1/D)
     Route: 042
     Dates: start: 20100701
  2. CISPLATIN [Suspect]
     Dosage: 150 MG, DAILY (1/D)
     Route: 042
     Dates: start: 20100701
  3. OTHER PHARMA COMPANY INV DRUG [Suspect]
     Indication: LUNG NEOPLASM MALIGNANT
     Dosage: UNK, UNKNOWN
     Route: 065
     Dates: start: 20100702

REACTIONS (1)
  - HYPONATRAEMIA [None]
